FAERS Safety Report 7400785-6 (Version None)
Quarter: 2011Q2

REPORT INFORMATION
  Report Type: 
  Country: None (occurrence: None)
  Receive Date: 20110407
  Receipt Date: 20110328
  Transmission Date: 20111010
  Serious: Yes (Hospitalization)
  Sender: FDA-Public Use
  Company Number: B0709260A

PATIENT
  Sex: Male

DRUGS (3)
  1. COMBIVIR [Suspect]
     Indication: HIV INFECTION
     Dosage: 2IUAX PER DAY
     Route: 048
     Dates: start: 20070712, end: 20110319
  2. ITRACONAZOLE [Suspect]
     Indication: ONYCHOMYCOSIS
     Dosage: 400MG PER DAY
     Route: 048
     Dates: start: 20110307, end: 20110314
  3. STOCRIN [Concomitant]
     Indication: HIV INFECTION
     Dosage: 3IUAX PER DAY
     Route: 048
     Dates: start: 20070712, end: 20110319

REACTIONS (6)
  - PLATELET COUNT DECREASED [None]
  - WHITE BLOOD CELL COUNT DECREASED [None]
  - CHILLS [None]
  - RED BLOOD CELL COUNT DECREASED [None]
  - PYREXIA [None]
  - HAEMATURIA [None]
